FAERS Safety Report 19025165 (Version 1)
Quarter: 2021Q1

REPORT INFORMATION
  Report Type: Spontaneous
  Country: US (occurrence: US)
  Receive Date: 20210318
  Receipt Date: 20210318
  Transmission Date: 20210420
  Serious: Yes (Death, Other)
  Sender: FDA-Public Use
  Company Number: US-AUROBINDO-AUR-APL-2019-050218

PATIENT
  Age: 59 Year
  Sex: Female
  Weight: 47.6 kg

DRUGS (24)
  1. PREDNISONE. [Suspect]
     Active Substance: PREDNISONE
     Indication: NON-HODGKIN^S LYMPHOMA
     Dosage: 6 CYCLES
     Route: 065
     Dates: start: 1999, end: 1999
  2. PREDNISONE. [Suspect]
     Active Substance: PREDNISONE
     Dosage: UNK
     Route: 042
     Dates: start: 2008
  3. CYCLOPHOSPHAMIDE. [Suspect]
     Active Substance: CYCLOPHOSPHAMIDE
     Indication: NON-HODGKIN^S LYMPHOMA
     Dosage: 6 CYCLES
     Route: 065
     Dates: start: 1999, end: 1999
  4. DECADRON [Concomitant]
     Active Substance: DEXAMETHASONE
     Indication: B-CELL LYMPHOMA
     Dosage: 1 DOSAGE FORM, 4 WEEK
     Route: 042
     Dates: start: 2004
  5. MABTHERA [Suspect]
     Active Substance: RITUXIMAB
     Indication: NON-HODGKIN^S LYMPHOMA
     Dosage: 4 DOSAGE FORM, ONCE A DAY
     Route: 042
     Dates: start: 1998
  6. ZEVALIN [Suspect]
     Active Substance: IBRITUMOMAB TIUXETAN
     Indication: B-CELL LYMPHOMA
     Dosage: UNK
     Route: 042
     Dates: start: 2005, end: 2005
  7. METHYLPREDNISOLONE. [Suspect]
     Active Substance: METHYLPREDNISOLONE
     Indication: B-CELL LYMPHOMA
     Dosage: 4 MILLIGRAM, 1 CYCLE OF R?ESHAP, 4 MG
     Route: 048
     Dates: start: 200806, end: 200806
  8. MITOXANTRONE [Suspect]
     Active Substance: MITOXANTRONE HYDROCHLORIDE
     Dosage: 20 UNK
     Route: 065
     Dates: start: 2004
  9. YTTRIUM (90 Y) [Suspect]
     Active Substance: YTTRIUM CHLORIDE Y-90
     Indication: B-CELL LYMPHOMA
     Dosage: UNK
     Route: 065
  10. VINCRISTINE SULFATE. [Suspect]
     Active Substance: VINCRISTINE SULFATE
     Indication: NON-HODGKIN^S LYMPHOMA
     Dosage: UNK
     Route: 042
     Dates: start: 2008
  11. CYCLOPHOSPHAMIDE. [Suspect]
     Active Substance: CYCLOPHOSPHAMIDE
     Indication: B-CELL LYMPHOMA
     Dosage: UNK
     Route: 042
     Dates: start: 2008
  12. CYTARABINE. [Suspect]
     Active Substance: CYTARABINE
     Indication: B-CELL LYMPHOMA
     Dosage: 1 CYCLE OF R?ESHAP
     Route: 065
     Dates: start: 200806, end: 200806
  13. ETOPOSIDE. [Suspect]
     Active Substance: ETOPOSIDE
     Indication: B-CELL LYMPHOMA
     Dosage: 1 CYCLE OF R?ESHAP,20 MG/ML
     Route: 042
     Dates: start: 200806, end: 200806
  14. MABTHERA [Suspect]
     Active Substance: RITUXIMAB
     Dosage: 1 DOSAGE FORM, 4 WEEK, 2004 3 CYCLES + 8 DOSES
     Route: 042
     Dates: start: 2004
  15. MABTHERA [Suspect]
     Active Substance: RITUXIMAB
     Dosage: 1 CYCLE OF R?ESHAP, 2008 1 CYCLE
     Route: 042
     Dates: start: 200806
  16. CISPLATIN. [Suspect]
     Active Substance: CISPLATIN
     Indication: B-CELL LYMPHOMA
     Dosage: 1 CYCLE OF R?ESHAP
     Route: 065
     Dates: start: 200806, end: 200806
  17. DECADRON [Suspect]
     Active Substance: DEXAMETHASONE
     Indication: B-CELL LYMPHOMA
     Dosage: 1 DOSAGE FORM, 4 WEEKS, 6 CYCLES
     Route: 042
     Dates: start: 2002, end: 2004
  18. MITOXANTRONE [Suspect]
     Active Substance: MITOXANTRONE HYDROCHLORIDE
     Indication: B-CELL LYMPHOMA
     Dosage: 25 MILLIGRAM, 6 CYCLES
     Route: 065
     Dates: start: 2002, end: 2004
  19. VINCRISTINE [Suspect]
     Active Substance: VINCRISTINE
     Indication: B-CELL LYMPHOMA
     Dosage: 6 CYCLES
     Route: 065
     Dates: start: 199912, end: 1999
  20. FLUDARABINE PHOSPHATE. [Concomitant]
     Active Substance: FLUDARABINE PHOSPHATE
     Indication: B-CELL LYMPHOMA
     Dosage: 50 MILLIGRAM, 4 WEEK, R?FND REGIMEN, 3 CYCLES
     Route: 042
     Dates: start: 2004
  21. FLUDARABINE PHOSPHATE. [Suspect]
     Active Substance: FLUDARABINE PHOSPHATE
     Indication: B-CELL LYMPHOMA
     Dosage: 50 MILLIGRAM, 4 WEEKS, R?FND REGIMEN, 3 CYCLES
     Route: 042
     Dates: start: 2002, end: 2004
  22. MABTHERA [Suspect]
     Active Substance: RITUXIMAB
     Indication: B-CELL LYMPHOMA
     Dosage: UNK
     Route: 065
     Dates: start: 1999
  23. ZEVALIN [Suspect]
     Active Substance: IBRITUMOMAB TIUXETAN
     Dosage: 1 DOSAGE FORM, ONCE A DAY
     Route: 042
     Dates: start: 2007, end: 2007
  24. MABTHERA [Suspect]
     Active Substance: RITUXIMAB
     Indication: B-CELL LYMPHOMA
     Dosage: 1 DOSAGE FORM, 4 WEEK, 3 CYCLES
     Route: 042
     Dates: start: 2002

REACTIONS (13)
  - Central nervous system lesion [Fatal]
  - Gait disturbance [Fatal]
  - Dysmetria [Fatal]
  - Head titubation [Fatal]
  - Non-Hodgkin^s lymphoma [Not Recovered/Not Resolved]
  - Progressive multifocal leukoencephalopathy [Fatal]
  - Dysarthria [Fatal]
  - Retroperitoneal lymphadenopathy [Fatal]
  - Pleural effusion [Fatal]
  - Lymphadenopathy [Fatal]
  - Nystagmus [Fatal]
  - Speech disorder [Fatal]
  - Ataxia [Fatal]

NARRATIVE: CASE EVENT DATE: 2008
